FAERS Safety Report 4569567-7 (Version None)
Quarter: 2005Q1

REPORT INFORMATION
  Report Type: 
  Country: None (occurrence: None)
  Receive Date: 20050201
  Receipt Date: 20050118
  Transmission Date: 20050727
  Serious: No
  Sender: FDA-Public Use
  Company Number: 2005AC00103

PATIENT
  Age: 31 Year
  Sex: Female

DRUGS (1)
  1. PROPOFOL [Suspect]
     Indication: GENERAL ANAESTHESIA

REACTIONS (16)
  - ANAESTHETIC COMPLICATION NEUROLOGICAL [None]
  - AURA [None]
  - CONVERSION DISORDER [None]
  - CONVULSION [None]
  - DISTURBANCE IN ATTENTION [None]
  - DIZZINESS [None]
  - EPILEPSY [None]
  - EXCITABILITY [None]
  - FATIGUE [None]
  - FEELING ABNORMAL [None]
  - GAIT DISTURBANCE [None]
  - HYPERVENTILATION [None]
  - MEMORY IMPAIRMENT [None]
  - NAUSEA [None]
  - POST PROCEDURAL COMPLICATION [None]
  - POSTICTAL HEADACHE [None]
